FAERS Safety Report 6715799-9 (Version None)
Quarter: 2010Q2

REPORT INFORMATION
  Report Type: 
  Country: None (occurrence: None)
  Receive Date: 20100507
  Receipt Date: 20100503
  Transmission Date: 20101027
  Serious: Yes (Disabling)
  Sender: FDA-Public Use
  Company Number: US-ELI_LILLY_AND_COMPANY-US200704001651

PATIENT
  Sex: Female
  Weight: 78.912 kg

DRUGS (10)
  1. BYETTA [Suspect]
     Indication: TYPE 2 DIABETES MELLITUS
     Dosage: 10 UG, 2/D
     Route: 058
     Dates: start: 20050101, end: 20070101
  2. BYETTA [Suspect]
     Dosage: 5 UG, DAILY (1/D)
     Route: 058
     Dates: start: 20070101, end: 20070201
  3. GABAPENTIN [Concomitant]
     Indication: HYPOAESTHESIA
     Dosage: 600 MG, 2/D
     Route: 048
  4. GLIPIZIDE [Concomitant]
     Indication: TYPE 2 DIABETES MELLITUS
     Dosage: 0.5 D/F, 2/D
     Route: 048
  5. LESCOL [Concomitant]
     Indication: BLOOD CHOLESTEROL
     Dosage: 80 MG, EACH EVENING
     Route: 048
     Dates: start: 20060101
  6. ALBUTEROL [Concomitant]
     Indication: DYSPNOEA
     Dosage: UNK, AS NEEDED
     Route: 055
     Dates: start: 20010101
  7. SINGULAIR [Concomitant]
     Indication: SEASONAL ALLERGY
     Dosage: 10 MG, DAILY (1/D)
     Route: 048
     Dates: start: 20040101
  8. METFORMIN [Concomitant]
     Indication: TYPE 2 DIABETES MELLITUS
     Dosage: 1000 MG, 2/D
     Route: 048
  9. METFORMIN [Concomitant]
     Dosage: 500 MG, 2/D
  10. LISINOPRIL [Concomitant]
     Indication: BLOOD PRESSURE
     Dates: start: 20061201

REACTIONS (14)
  - ARTHRALGIA [None]
  - BACK PAIN [None]
  - BLADDER PROLAPSE [None]
  - COUGH [None]
  - GROIN PAIN [None]
  - HYPERTENSION [None]
  - HYPOAESTHESIA [None]
  - INJECTION SITE PAIN [None]
  - LIMB INJURY [None]
  - MUSCLE INJURY [None]
  - MUSCULAR WEAKNESS [None]
  - MUSCULOSKELETAL PAIN [None]
  - URINARY INCONTINENCE [None]
  - VAGINAL DISCHARGE [None]
